FAERS Safety Report 5719489-0 (Version None)
Quarter: 2008Q2

REPORT INFORMATION
  Report Type: 
  Country: None (occurrence: None)
  Receive Date: 20080428
  Receipt Date: 20080418
  Transmission Date: 20081010
  Serious: Yes (Death, Hospitalization)
  Sender: FDA-Public Use
  Company Number: US-ROCHE-550002

PATIENT
  Age: 78 Year
  Sex: Male

DRUGS (1)
  1. XELODA [Suspect]
     Indication: HEPATIC CANCER METASTATIC
     Route: 065

REACTIONS (7)
  - DEATH [None]
  - DIARRHOEA [None]
  - MOUTH ULCERATION [None]
  - ORAL PAIN [None]
  - RED BLOOD CELL COUNT DECREASED [None]
  - SWOLLEN TONGUE [None]
  - WHITE BLOOD CELL COUNT DECREASED [None]
